FAERS Safety Report 7701685-4 (Version None)
Quarter: 2011Q3

REPORT INFORMATION
  Report Type: 
  Country: None (occurrence: None)
  Receive Date: 20110822
  Receipt Date: 20110808
  Transmission Date: 20111222
  Serious: Yes (Death, Hospitalization, Other)
  Sender: FDA-Public Use
  Company Number: US-KINGPHARMUSA00001-K201100727

PATIENT
  Age: 63 Year
  Sex: Female

DRUGS (6)
  1. BEVACIZUMAB [Suspect]
     Indication: BREAST CANCER
     Dosage: 10 MG/M2, CYCLICAL
     Route: 042
     Dates: start: 20101119, end: 20110408
  2. IXEMPRA KIT [Suspect]
     Indication: BREAST CANCER
     Dosage: 16 MG/M2, CYCLICAL
     Route: 042
     Dates: start: 20101119, end: 20110415
  3. GEMZAR [Suspect]
     Indication: DISEASE PROGRESSION
     Dosage: UNK
     Dates: start: 20110506
  4. CYTOMEL [Suspect]
     Indication: AUTOIMMUNE THYROIDITIS
     Dosage: UNK
     Route: 048
     Dates: start: 20110401
  5. LEVOXYL [Suspect]
     Indication: AUTOIMMUNE THYROIDITIS
     Dosage: UNK
     Route: 048
     Dates: start: 20110401
  6. CARBOPLATIN [Suspect]
     Indication: DISEASE PROGRESSION
     Dosage: UNK
     Dates: start: 20110506

REACTIONS (11)
  - WEIGHT DECREASED [None]
  - DYSPNOEA [None]
  - NEUROPATHY PERIPHERAL [None]
  - LOCAL SWELLING [None]
  - NERVOUS SYSTEM DISORDER [None]
  - PLEURAL EFFUSION [None]
  - DYSPHAGIA [None]
  - FATIGUE [None]
  - PNEUMOTHORAX [None]
  - LARYNGEAL OEDEMA [None]
  - CARDIO-RESPIRATORY ARREST [None]
